FAERS Safety Report 18705798 (Version 1)
Quarter: 2021Q1

REPORT INFORMATION
  Report Type: Spontaneous
  Country: US (occurrence: US)
  Receive Date: 20210105
  Receipt Date: 20210105
  Transmission Date: 20210419
  Serious: No
  Sender: FDA-Public Use
  Company Number: None

PATIENT
  Sex: Male

DRUGS (1)
  1. DESVENLAFAXINE 100 MG [Suspect]
     Active Substance: DESVENLAFAXINE

REACTIONS (1)
  - Pollakiuria [None]
